FAERS Safety Report 5730326-0 (Version None)
Quarter: 2008Q2

REPORT INFORMATION
  Report Type: 
  Country: None (occurrence: None)
  Receive Date: 20080505
  Receipt Date: 20080505
  Transmission Date: 20081010
  Serious: Yes (Death)
  Sender: FDA-Public Use
  Company Number: None

PATIENT
  Age: 46 Year
  Sex: Male
  Weight: 104.3273 kg

DRUGS (7)
  1. CYMBALTA [Suspect]
     Indication: DEPRESSION
     Dosage: 60 MG. 1 X DAY
     Dates: start: 20080314, end: 20080326
  2. LITHIUM CARBONATE [Concomitant]
  3. CYMBALTA [Concomitant]
  4. CLONAZEPAM [Concomitant]
  5. ENALAPRIL MALEATE [Concomitant]
  6. TRAZODONE HCL [Concomitant]
  7. HUMALOG MIX [Concomitant]

REACTIONS (4)
  - ASPHYXIA [None]
  - COMPLETED SUICIDE [None]
  - DEPRESSION [None]
  - PARADOXICAL DRUG REACTION [None]
